FAERS Safety Report 14074475 (Version 1)
Quarter: 2017Q4

REPORT INFORMATION
  Report Type: Spontaneous
  Country: US (occurrence: US)
  Receive Date: 20171010
  Receipt Date: 20171010
  Transmission Date: 20180321
  Serious: Yes (Death, Other)
  Sender: FDA-Public Use
  Company Number: US-MYLANLABS-2017M1063110

PATIENT
  Age: 76 Year
  Sex: Male

DRUGS (4)
  1. FENTANYL. [Suspect]
     Active Substance: FENTANYL
     Indication: CEREBELLAR HAEMORRHAGE
     Dosage: 75MCG/HOUR
     Route: 041
  2. KCENTRA [Suspect]
     Active Substance: COAGULATION FACTOR IX HUMAN\COAGULATION FACTOR VII HUMAN\COAGULATION FACTOR X HUMAN\PROTEIN C\PROTEIN S HUMAN\PROTHROMBIN
     Indication: CEREBELLAR HAEMORRHAGE
     Dosage: 1413UNITS; AT THE MAXIMAL RATE OF 8.4ML/MIN
     Route: 065
  3. WARFARIN [Suspect]
     Active Substance: WARFARIN
     Indication: EMBOLISM VENOUS
     Route: 065
  4. PHYTOMENADIONE [Suspect]
     Active Substance: PHYTONADIONE
     Indication: CEREBELLAR HAEMORRHAGE
     Route: 065

REACTIONS (2)
  - Hypotension [Fatal]
  - Cerebellar haemorrhage [Fatal]
